FAERS Safety Report 13237096 (Version 1)
Quarter: 2017Q1

REPORT INFORMATION
  Report Type: Spontaneous
  Country: US (occurrence: US)
  Receive Date: 20170215
  Receipt Date: 20170215
  Transmission Date: 20170428
  Serious: Yes (Other)
  Sender: FDA-Public Use
  Company Number: US-TEVA-739193USA

PATIENT
  Sex: Female

DRUGS (1)
  1. HYDROCORTISONE. [Suspect]
     Active Substance: HYDROCORTISONE
     Dates: start: 201601, end: 201701

REACTIONS (5)
  - Bipolar disorder [Unknown]
  - Intentional product misuse [Unknown]
  - Insomnia [Unknown]
  - Mania [Unknown]
  - Depression [Unknown]
